FAERS Safety Report 8096732-7 (Version None)
Quarter: 2012Q1

REPORT INFORMATION
  Report Type: 
  Country: None (occurrence: None)
  Receive Date: 20120129
  Receipt Date: 20111116
  Transmission Date: 20120608
  Serious: No
  Sender: FDA-Public Use
  Company Number: US-ABBOTT-11P-163-0874832-00

PATIENT
  Age: 50 Year
  Sex: Female

DRUGS (13)
  1. PREDNISONE TAB [Concomitant]
     Indication: RHEUMATOID ARTHRITIS
  2. HUMIRA [Suspect]
     Indication: RHEUMATOID ARTHRITIS
     Dates: start: 20111102
  3. LOTENSIN HCTZ [Concomitant]
     Indication: HYPERTENSION
     Dosage: 10MG/12.5
  4. SYNTHROID [Concomitant]
     Indication: HYPOTHYROIDISM
  5. OXYCONTIN [Concomitant]
     Indication: PRODUCT USED FOR UNKNOWN INDICATION
  6. LYRICA [Concomitant]
     Indication: PAIN MANAGEMENT
     Dosage: 3 IN 1 D,AS REQUIRED
  7. REMERON [Concomitant]
     Indication: PAIN MANAGEMENT
  8. KLONOPIN [Concomitant]
     Indication: INSOMNIA
     Dosage: AT BEDTIME
  9. PROTONIX [Concomitant]
     Indication: CROHN'S DISEASE
  10. NAPROSEN [Concomitant]
     Indication: INFLAMMATION
  11. PROCARDIA [Concomitant]
     Indication: RAYNAUD'S PHENOMENON
  12. COLACE [Concomitant]
     Indication: CONSTIPATION
     Dosage: 4 IN 1 D, AS REQUIRED
  13. COLACE [Concomitant]
     Indication: CROHN'S DISEASE

REACTIONS (2)
  - CHILLS [None]
  - HYPERHIDROSIS [None]
